FAERS Safety Report 6182943-4 (Version None)
Quarter: 2009Q2

REPORT INFORMATION
  Report Type: 
  Country: None (occurrence: None)
  Receive Date: 20090507
  Receipt Date: 20090424
  Transmission Date: 20091009
  Serious: Yes (Other)
  Sender: FDA-Public Use
  Company Number: FR-PFIZER INC-2009197830

PATIENT
  Age: 55 Year

DRUGS (1)
  1. SUNITINIB MALATE [Suspect]
     Indication: RENAL CANCER METASTATIC
     Dosage: 50 MG, 1X/DAY, 4 WEEKS ON/ 2 WEEKS OFF
     Dates: start: 20080101

REACTIONS (2)
  - SEPSIS [None]
  - SKIN NECROSIS [None]
